FAERS Safety Report 5808133-X (Version None)
Quarter: 2008Q3

REPORT INFORMATION
  Report Type: 
  Country: None (occurrence: None)
  Receive Date: 20080711
  Receipt Date: 20080702
  Transmission Date: 20090109
  Serious: Yes (Death, Other)
  Sender: FDA-Public Use
  Company Number: DZ-PFIZER INC-2008056095

PATIENT
  Age: 51 Year
  Sex: Female

DRUGS (1)
  1. PREGABALIN [Suspect]
     Indication: PAIN
     Route: 048

REACTIONS (2)
  - DEATH [None]
  - HYPERSENSITIVITY [None]
